FAERS Safety Report 5076448-1 (Version None)
Quarter: 2006Q3

REPORT INFORMATION
  Report Type: 
  Country: None (occurrence: None)
  Receive Date: 20060725
  Receipt Date: 20060412
  Transmission Date: 20061208
  Serious: No
  Sender: FDA-Public Use
  Company Number: 200612410BWH

PATIENT
  Age: 43 Year
  Sex: Female
  Weight: 54.4316 kg

DRUGS (2)
  1. NEXAVAR [Suspect]
     Indication: HEPATIC NEOPLASM MALIGNANT
     Dosage: SEE IMAGE
     Route: 048
     Dates: start: 20060301
  2. NEXAVAR [Suspect]
     Indication: HEPATIC NEOPLASM MALIGNANT
     Dosage: SEE IMAGE
     Route: 048
     Dates: start: 20060301

REACTIONS (6)
  - ANOREXIA [None]
  - MUSCULOSKELETAL PAIN [None]
  - PAIN IN EXTREMITY [None]
  - PYREXIA [None]
  - RASH [None]
  - WEIGHT DECREASED [None]
